FAERS Safety Report 9552422 (Version 1)
Quarter: 2013Q3

REPORT INFORMATION
  Report Type: Spontaneous
  Country: US (occurrence: None)
  Receive Date: 20130724
  Receipt Date: 20130724
  Transmission Date: 20140515
  Serious: Yes (Hospitalization)
  Sender: FDA-Public Use
  Company Number: PHEH2012US025721

PATIENT
  Age: 84 Year
  Sex: Female

DRUGS (3)
  1. RECLAST [Suspect]
     Route: 042
  2. ANTIBIOTICS (NO INGREDIENTS/SUBSTANCES) [Suspect]
  3. NADOLOL AND BENDROFLUMETHAZIDE (BENDROFLUMETHIAZIDE, NADOLOL) [Suspect]

REACTIONS (2)
  - Renal failure [None]
  - Drug hypersensitivity [None]
